FAERS Safety Report 4290549-7 (Version None)
Quarter: 2004Q1

REPORT INFORMATION
  Report Type: 
  Country: None (occurrence: None)
  Receive Date: 20040209
  Receipt Date: 20040130
  Transmission Date: 20041129
  Serious: Yes (Hospitalization)
  Sender: FDA-Public Use
  Company Number: USA-2004-0012750

PATIENT
  Sex: Female

DRUGS (1)
  1. OXYCONTIN [Suspect]
     Indication: PAIN
     Dosage: 10 MG, SINGLE,  UNK

REACTIONS (3)
  - COMA [None]
  - DISEASE PROGRESSION [None]
  - RENAL FAILURE CHRONIC [None]
